FAERS Safety Report 7995858-3 (Version None)
Quarter: 2011Q4

REPORT INFORMATION
  Report Type: 
  Country: None (occurrence: None)
  Receive Date: 20111216
  Receipt Date: 20111207
  Transmission Date: 20120403
  Serious: Yes (Other)
  Sender: FDA-Public Use
  Company Number: 1000026098

PATIENT
  Sex: Male

DRUGS (1)
  1. TEFLARO [Suspect]
     Indication: OSTEOMYELITIS

REACTIONS (2)
  - PANCYTOPENIA [None]
  - OFF LABEL USE [None]
